FAERS Safety Report 8899750 (Version 1)
Quarter: 2012Q4

REPORT INFORMATION
  Report Type: 
  Country: US (occurrence: US)
  Receive Date: 20121108
  Receipt Date: 20121108
  Transmission Date: 20130627
  Serious: No
  Sender: FDA-Public Use
  Company Number: US-AMGEN-USASP2012035773

PATIENT
  Age: 56 Year
  Sex: Female

DRUGS (10)
  1. ENBREL [Suspect]
     Indication: PRODUCT USED FOR UNKNOWN INDICATION
     Dosage: 50 mg, qwk
     Route: 058
  2. TYLENOL W/CODEINE NO. 3 [Concomitant]
  3. ATENOLOL [Concomitant]
     Dosage: 50 mg, UNK
  4. SIMVASTATIN [Concomitant]
     Dosage: 20 mg, UNK
  5. NEURONTIN [Concomitant]
     Dosage: 100 mg, UNK
  6. SONATA                             /01454001/ [Concomitant]
     Dosage: 10 mg, UNK
  7. VITAMIN C                          /00008001/ [Concomitant]
     Dosage: 1000 mg, UNK
  8. VITAMIN D /00107901/ [Concomitant]
     Dosage: 1000 IU, UNK
  9. FOLIC ACID [Concomitant]
  10. ZINC [Concomitant]
     Dosage: 30 mg, UNK

REACTIONS (3)
  - Injection site reaction [Unknown]
  - Urticaria [Unknown]
  - Injection site pain [Unknown]
